FAERS Safety Report 9936815 (Version 1)
Quarter: 2014Q1

REPORT INFORMATION
  Report Type: Spontaneous
  Country: US (occurrence: None)
  Receive Date: 20140109
  Receipt Date: 20140109
  Transmission Date: 20141002
  Serious: Yes (Other)
  Sender: FDA-Public Use
  Company Number: PHEH2013US024310

PATIENT
  Age: 36 Year
  Sex: Female
  Weight: 67 kg

DRUGS (2)
  1. SIGNIFOR (PASIREOTIDE) UNKNOWN [Suspect]
     Indication: PITUITARY-DEPENDENT CUSHING^S SYNDROME
     Route: 058
     Dates: start: 20131018, end: 20131021
  2. SIGNIFOR (PASIREOTIDE) UNKNOWN [Suspect]
     Indication: PITUITARY-DEPENDENT CUSHING^S SYNDROME
     Route: 058
     Dates: start: 20131018, end: 20131021

REACTIONS (1)
  - Abdominal pain [None]
